FAERS Safety Report 8437454 (Version 1)
Quarter: 2012Q4

REPORT INFORMATION
  Report Type: 
  Country: DE (occurrence: DE)
  Receive Date: 20120830
  Receipt Date: 20120830
  Transmission Date: 20130627
  Serious: Yes (Other)
  Sender: FDA-Public Use
  Company Number: DE-US-EMD SERONO, INC.-7057972

PATIENT
  Sex: Female

DRUGS (4)
  1. REBIF [Suspect]
     Indication: MULTIPLE SCLEROSIS
     Route: 058
     Dates: start: 2007, end: 20110505
  2. REBIF [Suspect]
  3. PARACETAMOL [Concomitant]
     Indication: PRODUCT USED FOR UNKNOWN INDICATION
  4. IMMUNOGLOBULINS [Concomitant]
     Indication: PROPHYLAXIS

REACTIONS (5)
  - Premature delivery [Unknown]
  - Multiple sclerosis relapse [Not Recovered/Not Resolved]
  - Influenza like illness [Unknown]
  - Foetal exposure during pregnancy [Recovered/Resolved]
  - Normal newborn [Recovered/Resolved]
